FAERS Safety Report 8499807 (Version 2)
Quarter: 2012Q4

REPORT INFORMATION
  Report Type: Report from Study
  Country: JP (occurrence: JP)
  Receive Date: 20120409
  Receipt Date: 20121105
  Transmission Date: 20130627
  Serious: Yes (Other)
  Sender: FDA-Public Use
  Company Number: JP-ROCHE-1056008

PATIENT
  Age: 76 Year
  Sex: Female

DRUGS (10)
  1. RANIBIZUMAB [Suspect]
     Indication: AGE-RELATED MACULAR DEGENERATION
     Route: 050
     Dates: start: 20091126
  2. RANIBIZUMAB [Suspect]
     Route: 050
     Dates: start: 20100309
  3. RANIBIZUMAB [Suspect]
     Route: 050
     Dates: start: 20110128
  4. RANIBIZUMAB [Suspect]
     Route: 050
     Dates: start: 20110205
  5. RANIBIZUMAB [Suspect]
     Route: 050
     Dates: start: 20110406
  6. RANIBIZUMAB [Suspect]
     Route: 050
     Dates: start: 20110510
  7. RANIBIZUMAB [Suspect]
     Route: 050
     Dates: start: 20110610
  8. RANIBIZUMAB [Suspect]
     Route: 050
     Dates: start: 20110722
  9. VISUDYNE [Concomitant]
     Route: 065
     Dates: start: 20091201, end: 20100309
  10. GATIFLO [Concomitant]
     Route: 065
     Dates: start: 200911, end: 201003

REACTIONS (2)
  - Retinal haemorrhage [Unknown]
  - Inappropriate schedule of drug administration [Unknown]
